FAERS Safety Report 9238503 (Version 3)
Quarter: 2013Q3

REPORT INFORMATION
  Report Type: Spontaneous
  Country: GB (occurrence: GB)
  Receive Date: 20130418
  Receipt Date: 20130806
  Transmission Date: 20140515
  Serious: Yes (Hospitalization, Other)
  Sender: FDA-Public Use
  Company Number: GB-ELI_LILLY_AND_COMPANY-GB201304004105

PATIENT
  Sex: Male

DRUGS (5)
  1. CIALIS [Suspect]
     Indication: ERECTILE DYSFUNCTION
     Dosage: 20 MG, SINGLE
     Route: 048
     Dates: start: 20130408, end: 20130411
  2. AMLODIPINE [Concomitant]
     Indication: HYPERTENSION
     Dosage: 8 MG, QD
  3. BENDROFLUMETHIAZIDE [Concomitant]
     Indication: HYPERTENSION
     Dosage: 2.5 MG, QD
  4. PERINDOPRIL [Concomitant]
     Indication: HYPERTENSION
     Dosage: 10 MG, QD
  5. DIHYDROCODEINE [Concomitant]

REACTIONS (7)
  - Electrocardiogram T wave amplitude decreased [Recovered/Resolved]
  - Dehydration [Recovered/Resolved]
  - Back pain [Recovered/Resolved]
  - Myalgia [Recovered/Resolved]
  - Suspected counterfeit product [Unknown]
  - Expired drug administered [Unknown]
  - Drug ineffective [Unknown]
